FAERS Safety Report 6150704-8 (Version None)
Quarter: 2009Q2

REPORT INFORMATION
  Report Type: 
  Country: None (occurrence: None)
  Receive Date: 20090409
  Receipt Date: 20090402
  Transmission Date: 20091009
  Serious: Yes (Other)
  Sender: FDA-Public Use
  Company Number: PHHY2008IE20881

PATIENT
  Age: 66 Year
  Sex: Female

DRUGS (9)
  1. RASILEZ [Suspect]
     Indication: BLOOD PRESSURE
     Dosage: 150 MG, QD
     Route: 048
     Dates: end: 20080801
  2. RASILEZ [Suspect]
     Indication: DIABETES MELLITUS
  3. IMODIUM [Concomitant]
  4. ASPIRIN [Concomitant]
  5. NOVORAPID [Concomitant]
  6. LEVEMIR [Concomitant]
  7. INSULIN [Concomitant]
  8. IDEOS [Concomitant]
  9. ATENI [Concomitant]

REACTIONS (5)
  - BLOOD CALCIUM INCREASED [None]
  - BLOOD CREATININE INCREASED [None]
  - BLOOD UREA INCREASED [None]
  - CONDITION AGGRAVATED [None]
  - HYPERKALAEMIA [None]
